FAERS Safety Report 20872543 (Version 2)
Quarter: 2022Q2

REPORT INFORMATION
  Report Type: Report from Study
  Country: US (occurrence: None)
  Receive Date: 20220525
  Receipt Date: 20220606
  Transmission Date: 20220721
  Serious: Yes (Hospitalization)
  Sender: FDA-Public Use
  Company Number: US-ROCHE-3101038

PATIENT
  Age: 73 Year
  Sex: Female
  Weight: 92 kg

DRUGS (18)
  1. RANIBIZUMAB [Suspect]
     Active Substance: RANIBIZUMAB
     Indication: Diabetic retinal oedema
     Dosage: ON 22/JAN/20221, AT 10: 33 IMPLANT INSERTION WAS DONE?DOSE LAST STUDY DRUG ADMIN PRIOR AE/SAE:10 MG/
     Route: 050
     Dates: start: 20200319
  2. RANIBIZUMAB [Suspect]
     Active Substance: RANIBIZUMAB
  3. RANIBIZUMAB [Suspect]
     Active Substance: RANIBIZUMAB
  4. RANIBIZUMAB [Suspect]
     Active Substance: RANIBIZUMAB
  5. RANIBIZUMAB [Suspect]
     Active Substance: RANIBIZUMAB
  6. RANIBIZUMAB [Suspect]
     Active Substance: RANIBIZUMAB
  7. BACLOFEN [Concomitant]
     Active Substance: BACLOFEN
     Indication: Restless legs syndrome
     Dates: start: 20170301
  8. DETROL [Concomitant]
     Active Substance: TOLTERODINE TARTRATE
     Indication: Hypertonic bladder
     Dates: start: 20150301
  9. LOSARTAN [Concomitant]
     Active Substance: LOSARTAN
     Indication: Hypertension
     Dates: start: 20100319
  10. NIFEDIPINE [Concomitant]
     Active Substance: NIFEDIPINE
     Indication: Hypertension
     Dates: start: 20190301
  11. NOVOLOG [Concomitant]
     Active Substance: INSULIN ASPART
     Indication: Type 2 diabetes mellitus
     Dates: start: 20100319
  12. CANNABIDIOL [Concomitant]
     Active Substance: CANNABIDIOL
     Indication: Neuropathy peripheral
     Dates: start: 20200522
  13. GABAPENTIN [Concomitant]
     Active Substance: GABAPENTIN
     Indication: Neuropathy peripheral
     Dosage: 300 MG/ML
     Route: 048
     Dates: start: 20201028
  14. FLUOROURACIL [Concomitant]
     Active Substance: FLUOROURACIL
     Indication: Basal cell carcinoma
     Route: 061
     Dates: start: 20201230
  15. ZINC [Concomitant]
     Active Substance: ZINC
     Dates: start: 20200910
  16. OFLOXACIN [Concomitant]
     Active Substance: OFLOXACIN
     Route: 047
     Dates: start: 20210119
  17. OXYBUTYNIN [Concomitant]
     Active Substance: OXYBUTYNIN
     Indication: Hypertonic bladder
     Dosage: 10 MG/ML
     Route: 048
     Dates: start: 20220419
  18. RANIBIZUMAB [Concomitant]
     Active Substance: RANIBIZUMAB
     Dosage: DOSE LAST STUDY DRUG ADMIN PRIOR SAE AND DOSE OF STUDY DRUG FIRST ADMINISTERED: 6 MG/ML
     Route: 050
     Dates: start: 20210322

REACTIONS (1)
  - Cerebrovascular accident [Not Recovered/Not Resolved]

NARRATIVE: CASE EVENT DATE: 20220515
